FAERS Safety Report 21875133 (Version 4)
Quarter: 2023Q2

REPORT INFORMATION
  Report Type: Report from Study
  Country: BR (occurrence: BR)
  Receive Date: 20230117
  Receipt Date: 20230628
  Transmission Date: 20230721
  Serious: Yes (Hospitalization)
  Sender: FDA-Public Use
  Company Number: BR-JNJFOC-20230123602

PATIENT
  Sex: Female
  Weight: 50 kg

DRUGS (1)
  1. INFLIXIMAB [Suspect]
     Active Substance: INFLIXIMAB
     Indication: Ankylosing spondylitis
     Dosage: 2 VIALS
     Route: 041
     Dates: start: 2013, end: 2020

REACTIONS (7)
  - Weight decreased [Unknown]
  - Vomiting [Unknown]
  - Diarrhoea [Unknown]
  - Pain [Unknown]
  - Drug resistance [Unknown]
  - Off label use [Unknown]
  - Off label use [Unknown]

NARRATIVE: CASE EVENT DATE: 20130101
